FAERS Safety Report 7474969-5 (Version None)
Quarter: 2011Q2

REPORT INFORMATION
  Report Type: 
  Country: None (occurrence: None)
  Receive Date: 20110505
  Receipt Date: 20110428
  Transmission Date: 20111010
  Serious: Yes (Disabling)
  Sender: FDA-Public Use
  Company Number: 904736

PATIENT
  Age: 74 Year
  Sex: Male

DRUGS (1)
  1. DEFEROXAMINE MESYLATE [Suspect]
     Indication: PRODUCT USED FOR UNKNOWN INDICATION
     Dosage: 1.5 G, SUBCUTANEOUS
     Route: 058

REACTIONS (4)
  - NEUROTOXICITY [None]
  - OPTIC NEUROPATHY [None]
  - OCULAR TOXICITY [None]
  - DEAFNESS NEUROSENSORY [None]
